FAERS Safety Report 7347704 (Version 3)
Quarter: 2017Q1

REPORT INFORMATION
  Report Type: Report from Study
  Country: BR (occurrence: BR)
  Receive Date: 20100407
  Receipt Date: 20170224
  Transmission Date: 20170429
  Serious: Yes (Other)
  Sender: FDA-Public Use
  Company Number: PHHY2010BR19659

PATIENT
  Age: 55 Year
  Sex: Female

DRUGS (7)
  1. TRILEPTAL [Suspect]
     Active Substance: OXCARBAZEPINE
     Indication: MEMORY IMPAIRMENT
     Dosage: 3 DF (300 MG), QD (1 TABLET OF 300 MG AT LUNCH AND 2 TABLETS OF 300 MG AT NIGHT)
     Route: 048
  2. TRILEPTAL [Suspect]
     Active Substance: OXCARBAZEPINE
     Dosage: 0.5 DF (300 MG), TID
     Route: 048
  3. ISOFLAVONES [Concomitant]
     Indication: MENOPAUSE
     Dosage: 1 DF DAILY
     Route: 048
     Dates: start: 20100320
  4. TRILEPTAL [Suspect]
     Active Substance: OXCARBAZEPINE
     Indication: HEADACHE
     Dosage: 2 DF, QD (300 MG IN THE MORNING AND ONE TABLET OF 600 MG)
     Route: 048
     Dates: start: 1985
  5. TRILEPTAL [Suspect]
     Active Substance: OXCARBAZEPINE
     Indication: PETIT MAL EPILEPSY
     Dosage: 1 DF (300 MG), BID (1 IN MORNING AND 1 AT NIGHT)
     Route: 048
  6. TRILEPTAL [Suspect]
     Active Substance: OXCARBAZEPINE
     Dosage: 1 DF (300 MG), QD
     Route: 048
  7. ATENOLOL. [Concomitant]
     Active Substance: ATENOLOL
     Indication: BLOOD PRESSURE ABNORMAL
     Dosage: 1 DF, QD
     Route: 065

REACTIONS (8)
  - Headache [Recovered/Resolved]
  - Wrong technique in product usage process [Unknown]
  - Malaise [Recovered/Resolved]
  - Nausea [Recovered/Resolved]
  - Blood pressure increased [Recovered/Resolved]
  - Labyrinthitis [Recovered/Resolved]
  - Dizziness [Recovered/Resolved]
  - Product use issue [Unknown]

NARRATIVE: CASE EVENT DATE: 20100320
